FAERS Safety Report 8817140 (Version 1)
Quarter: 2012Q4

REPORT INFORMATION
  Report Type: Spontaneous
  Country: None (occurrence: None)
  Receive Date: 20121002
  Receipt Date: 20121002
  Transmission Date: 20130627
  Serious: Yes (Hospitalization)
  Sender: FDA-Public Use
  Company Number: AUR-APL-2012-04209

PATIENT
  Age: 63 Year
  Sex: Male
  Weight: 67 kg

DRUGS (27)
  1. LEVETIRACETAM [Suspect]
     Indication: SEIZURE
     Dates: start: 20111201, end: 20111207
  2. LEVETIRACETAM [Suspect]
     Indication: SEIZURE
     Dates: start: 20111207, end: 20120215
  3. LEVETIRACETAM [Suspect]
     Indication: SEIZURE
     Dates: start: 201207, end: 20120904
  4. LEVETIRACETAM [Suspect]
     Indication: SEIZURE
     Dates: start: 20120904
  5. LAMOTRIGINE [Suspect]
     Indication: SEIZURE
     Route: 048
     Dates: start: 20120201, end: 20120215
  6. LAMOTRIGINE [Suspect]
     Indication: SEIZURE
     Dates: start: 20120215, end: 20120224
  7. LAMOTRIGINE [Suspect]
     Indication: SEIZURE
     Dates: start: 20120224, end: 201207
  8. LAMOTRIGINE [Suspect]
     Indication: SEIZURE
     Dates: start: 20120801, end: 201208
  9. LAMOTRIGINE [Suspect]
     Indication: SEIZURE
     Dates: start: 20120829
  10. IRINOTECAN [Suspect]
     Indication: MALIGNANT NEOPLASM OF BRAIN
     Route: 042
     Dates: start: 20111026
  11. BEVACIZUMAB [Suspect]
     Indication: MALIGNANT NEOPLASM OF BRAIN
     Dates: start: 20110831
  12. BEVACIZUMAB [Suspect]
     Indication: MALIGNANT NEOPLASM OF BRAIN
     Route: 042
  13. TEMOZOLOMIDE [Suspect]
     Indication: MALIGNANT NEOPLASM OF BRAIN
     Route: 048
  14. DEXAMETHASONE [Concomitant]
  15. SIMVASTATIN (SIMVASTATIN) [Concomitant]
  16. EUTHYROX (LEVOTHYROXINE SODIUM) [Concomitant]
  17. LISINOPRIL (LISINOPRIL) [Concomitant]
  18. HYDROCHLOROTHIAZIDE (HYDROCHLOROTHIAZIDE) [Concomitant]
  19. FELODIPINE (FELODIPINE) [Concomitant]
  20. MAGNOGENE (MAGNESIUM CHLORIDE ANHYDROUS) [Concomitant]
  21. CITALOPRAM (CITALOPRAM) [Concomitant]
  22. ZOPICLONE (ZOPICLONE) [Concomitant]
  23. METOCLOPRAMIDE (METOCLOPRAMIDE) [Concomitant]
  24. LAXOBERAL (SODIUM PICOSULFATE) [Concomitant]
  25. NEXIUM (ESOMEPRAZOLE MAGNESIUM) [Concomitant]
  26. MOVICOL [Concomitant]
  27. RIVOTRIL (CLONAZEPAM) [Concomitant]

REACTIONS (1)
  - Convulsion [None]
